FAERS Safety Report 25740425 (Version 1)
Quarter: 2025Q3

REPORT INFORMATION
  Report Type: Spontaneous
  Country: US (occurrence: None)
  Receive Date: 20250828
  Receipt Date: 20250828
  Transmission Date: 20251020
  Serious: Yes (Hospitalization)
  Sender: FDA-CTU
  Company Number: None

PATIENT
  Age: 71 Year
  Sex: Female
  Weight: 97.8 kg

DRUGS (14)
  1. CEFTRIAXONE SODIUM [Suspect]
     Active Substance: CEFTRIAXONE SODIUM
     Indication: Urinary tract infection
     Route: 042
  2. Aspirin 81 mg QD [Concomitant]
  3. Atorvastatin 40 mg QD [Concomitant]
  4. Bumetanide 0.5 mg QOD [Concomitant]
  5. Calcitriol 0.25 mcg QD [Concomitant]
  6. Dulaglutide 0.75 mg Q7Days [Concomitant]
  7. Empagliflozin 10 mg QD [Concomitant]
  8. Gabapentin 100 mg QHS [Concomitant]
  9. Insulin Glargine 60 units QHS [Concomitant]
  10. Isosorbide mononitrate 30 mg QHS [Concomitant]
  11. Lidocaine 4% Patch QD [Concomitant]
  12. Losartan 50 mg QD [Concomitant]
  13. Metoprolol 12.5 mg BID [Concomitant]
  14. Tamsulosin 0.4 mg QD [Concomitant]

REACTIONS (5)
  - Anaphylactic reaction [None]
  - Burning sensation [None]
  - Hypoxia [None]
  - Hypotension [None]
  - Infusion related reaction [None]

NARRATIVE: CASE EVENT DATE: 20250821
